FAERS Safety Report 10038407 (Version 3)
Quarter: 2014Q3

REPORT INFORMATION
  Report Type: Spontaneous
  Country: FR (occurrence: FR)
  Receive Date: 20140326
  Receipt Date: 20140807
  Transmission Date: 20150326
  Serious: Yes (Other)
  Sender: FDA-Public Use
  Company Number: FR-BAYER-2014-041266

PATIENT
  Age: 40 Year
  Sex: Female
  Weight: 55 kg

DRUGS (2)
  1. CERAZETTE [Suspect]
     Active Substance: DESOGESTREL
     Indication: CONTRACEPTION
     Dosage: UNK
     Route: 048
     Dates: start: 201309, end: 201312
  2. MIRENA [Suspect]
     Active Substance: LEVONORGESTREL
     Indication: CONTRACEPTION
     Dosage: 20 MCG/24HR, CONT
     Route: 015
     Dates: start: 200906, end: 20140515

REACTIONS (14)
  - Thrombophlebitis superficial [None]
  - Device breakage [None]
  - Retinal haemorrhage [Recovered/Resolved]
  - Retinal vascular disorder [Recovered/Resolved]
  - Complication of device insertion [None]
  - Retinal vein thrombosis [Recovered/Resolved]
  - Retinal oedema [Recovered/Resolved]
  - Visual acuity reduced [Recovered/Resolved]
  - Uterine perforation [None]
  - Migraine [None]
  - Retinal vein occlusion [Recovered/Resolved]
  - Presyncope [None]
  - Macular degeneration [Recovered/Resolved]
  - Retinal cyst [Recovered/Resolved]

NARRATIVE: CASE EVENT DATE: 200906
